FAERS Safety Report 6493973-7 (Version None)
Quarter: 2009Q4

REPORT INFORMATION
  Report Type: 
  Country: None (occurrence: None)
  Receive Date: 20091214
  Receipt Date: 20081202
  Transmission Date: 20100525
  Serious: No
  Sender: FDA-Public Use
  Company Number: US-BRISTOL-MYERS SQUIBB COMPANY-14428502

PATIENT
  Age: 48 Year
  Sex: Female

DRUGS (2)
  1. ABILIFY [Suspect]
     Indication: BIPOLAR DISORDER
     Dosage: DOSE REDUCED TO 15MG QD AND INCREASED TO 20MG
  2. DEPAKOTE [Concomitant]

REACTIONS (2)
  - ASTHENIA [None]
  - TREMOR [None]
